FAERS Safety Report 25308740 (Version 1)
Quarter: 2025Q2

REPORT INFORMATION
  Report Type: Report from Study
  Country: US (occurrence: US)
  Receive Date: 20250513
  Receipt Date: 20250513
  Transmission Date: 20250716
  Serious: Yes (Hospitalization, Other)
  Sender: ABBVIE
  Company Number: US-ABBVIE-6272252

PATIENT
  Age: 59 Year
  Sex: Male

DRUGS (1)
  1. CREON [Suspect]
     Active Substance: PANCRELIPASE AMYLASE\PANCRELIPASE LIPASE\PANCRELIPASE PROTEASE
     Indication: Pancreatic failure
     Route: 048
     Dates: start: 20230404

REACTIONS (8)
  - Loss of consciousness [Recovering/Resolving]
  - Abdominoplasty [Recovering/Resolving]
  - Anaemia [Recovering/Resolving]
  - Cerebrovascular accident [Recovering/Resolving]
  - Swelling [Recovering/Resolving]
  - Fluid retention [Unknown]
  - Lethargy [Unknown]
  - Fatigue [Unknown]

NARRATIVE: CASE EVENT DATE: 20241211
